FAERS Safety Report 19980945 (Version 1)
Quarter: 2021Q4

REPORT INFORMATION
  Report Type: Spontaneous
  Country: BE (occurrence: BE)
  Receive Date: 20211021
  Receipt Date: 20211021
  Transmission Date: 20220303
  Serious: Yes (Other)
  Sender: FDA-Public Use
  Company Number: BE-PFIZER INC-202101381574

PATIENT
  Age: 57 Year
  Sex: Female

DRUGS (4)
  1. CYTARABINE [Suspect]
     Active Substance: CYTARABINE
     Indication: Acute myeloid leukaemia
     Dosage: 200 MG/M2, 1X/DAY 200 MG/M2 (200 MG/M2 /DAY FOR SEVEN DAYS OF INDUCTION)
  2. CYTARABINE [Suspect]
     Active Substance: CYTARABINE
     Dosage: 600 MG/M2, 1X/DAY 600 MG/M2 (600 MG/M2/DAY FOR SIX DAYS OF CONSOLIDATION)
  3. DAUNORUBICIN [Concomitant]
     Active Substance: DAUNORUBICIN
     Indication: Acute myeloid leukaemia
     Dosage: 60 MG/M2, 1X/ (60 MG/M2/DAY FOR 3 DAYS OF INDUCTION)
     Route: 042
  4. DAUNORUBICIN [Concomitant]
     Active Substance: DAUNORUBICIN
     Dosage: 45 MG/M2, 1X/DAY [(45 MG/M2/ DAY FOR THREE DAYS OF CONSOLIDATION]
     Route: 042

REACTIONS (1)
  - Encephalitis toxic [Recovering/Resolving]
